FAERS Safety Report 6661139-3 (Version None)
Quarter: 2010Q1

REPORT INFORMATION
  Report Type: 
  Country: None (occurrence: None)
  Receive Date: 20100331
  Receipt Date: 20100325
  Transmission Date: 20100710
  Serious: Yes (Hospitalization)
  Sender: FDA-Public Use
  Company Number: A0782769A

PATIENT
  Age: 53 Year
  Sex: Male
  Weight: 136.4 kg

DRUGS (14)
  1. AVANDIA [Suspect]
     Indication: DIABETES MELLITUS
     Route: 048
     Dates: start: 20030101, end: 20070917
  2. METFORMIN (GLUCOPHAGE) [Concomitant]
     Dates: start: 20020712
  3. LEVEMIR [Concomitant]
  4. CRESTOR [Concomitant]
  5. LOTREL [Concomitant]
  6. DIOVAN [Concomitant]
  7. ENALAPRIL MALEATE [Concomitant]
  8. INSULIN [Concomitant]
  9. BYETTA [Concomitant]
  10. SPIRIVA [Concomitant]
  11. FLOVENT [Concomitant]
  12. ALBUTEROL [Concomitant]
  13. VASOTEC [Concomitant]
  14. LOPRESSOR [Concomitant]

REACTIONS (6)
  - ACUTE CORONARY SYNDROME [None]
  - CARDIAC FAILURE CONGESTIVE [None]
  - CAROTID ARTERY STENOSIS [None]
  - CORONARY ARTERY DISEASE [None]
  - ISCHAEMIC CARDIOMYOPATHY [None]
  - MYOCARDIAL INFARCTION [None]
